FAERS Safety Report 18628647 (Version 2)
Quarter: 2021Q1

REPORT INFORMATION
  Report Type: Other
  Country: US (occurrence: US)
  Receive Date: 20201217
  Receipt Date: 20210324
  Transmission Date: 20210419
  Serious: Yes (Other)
  Sender: FDA-Public Use
  Company Number: US-AMAG PHARMACEUTICALS, INC.-AMAG202003852

PATIENT
  Age: 29 Year
  Sex: Female

DRUGS (1)
  1. MAKENA [Suspect]
     Active Substance: HYDROXYPROGESTERONE CAPROATE
     Indication: PREMATURE DELIVERY
     Route: 058
     Dates: start: 20200831, end: 20201019

REACTIONS (3)
  - Premature delivery [Recovered/Resolved]
  - Off label use [Unknown]
  - Preterm premature rupture of membranes [Recovered/Resolved]

NARRATIVE: CASE EVENT DATE: 2020
